FAERS Safety Report 7959009-3 (Version None)
Quarter: 2011Q4

REPORT INFORMATION
  Report Type: 
  Country: None (occurrence: None)
  Receive Date: 20111130
  Receipt Date: 20111123
  Transmission Date: 20120403
  Serious: Yes (Other)
  Sender: FDA-Public Use
  Company Number: CRC-11-203

PATIENT
  Age: 36 Year
  Sex: Male
  Weight: 104.3273 kg

DRUGS (2)
  1. DEPAKOTE [Concomitant]
  2. PHENYTOIN SODIUM [Suspect]
     Indication: GRAND MAL CONVULSION
     Dosage: 3 CAPS IN AM+PM; ORAL
     Route: 048
     Dates: start: 20110801

REACTIONS (2)
  - GRAND MAL CONVULSION [None]
  - BLOOD GLUCOSE DECREASED [None]
